FAERS Safety Report 6227296-8 (Version None)
Quarter: 2009Q2

REPORT INFORMATION
  Report Type: 
  Country: None (occurrence: None)
  Receive Date: 20090612
  Receipt Date: 20090608
  Transmission Date: 20091009
  Serious: Yes (Life-Threatening, Other)
  Sender: FDA-Public Use
  Company Number: FR-ASTRAZENECA-2009SE02493

PATIENT
  Age: 92 Year
  Sex: Female

DRUGS (1)
  1. ROPIVACAINE [Suspect]
     Indication: LOCAL ANAESTHESIA
     Route: 053

REACTIONS (2)
  - CARDIAC ARREST [None]
  - GRAND MAL CONVULSION [None]
